FAERS Safety Report 7899923-0 (Version None)
Quarter: 2011Q4

REPORT INFORMATION
  Report Type: 
  Country: None (occurrence: None)
  Receive Date: 20111107
  Receipt Date: 20111011
  Transmission Date: 20120403
  Serious: No
  Sender: FDA-Public Use
  Company Number: US-AMGEN-USASP2011047804

PATIENT
  Age: 59 Year
  Sex: Female

DRUGS (1)
  1. ENBREL [Suspect]
     Indication: RHEUMATOID ARTHRITIS
     Dosage: UNK
     Dates: start: 20100518, end: 20110902

REACTIONS (7)
  - SINUSITIS [None]
  - FATIGUE [None]
  - PAIN IN EXTREMITY [None]
  - ABDOMINAL DISTENSION [None]
  - DIZZINESS [None]
  - ABDOMINAL PAIN UPPER [None]
  - PAIN [None]
